APPROVED DRUG PRODUCT: CAPTOPRIL
Active Ingredient: CAPTOPRIL
Strength: 12.5MG
Dosage Form/Route: TABLET;ORAL
Application: A074677 | Product #004 | TE Code: AB
Applicant: ANDAS 5 HOLDING LLC
Approved: May 30, 1997 | RLD: No | RS: No | Type: RX